FAERS Safety Report 6071975-2 (Version None)
Quarter: 2009Q1

REPORT INFORMATION
  Report Type: 
  Country: None (occurrence: None)
  Receive Date: 20090210
  Receipt Date: 20090127
  Transmission Date: 20090719
  Serious: Yes (Other)
  Sender: FDA-Public Use
  Company Number: ES-BIOGENIDEC-2009BI000830

PATIENT
  Age: 32 Year
  Sex: Female
  Weight: 60 kg

DRUGS (4)
  1. TYSABRI [Suspect]
     Indication: MULTIPLE SCLEROSIS
     Route: 042
     Dates: start: 20081126, end: 20081126
  2. ANTIHISTAMINE [Concomitant]
  3. CORTICOID [Concomitant]
  4. OMEPRAZOLE [Concomitant]

REACTIONS (1)
  - LEUKAEMOID REACTION [None]
